FAERS Safety Report 13604051 (Version 1)
Quarter: 2017Q2

REPORT INFORMATION
  Report Type: Spontaneous
  Country: US (occurrence: US)
  Receive Date: 20170601
  Receipt Date: 20170601
  Transmission Date: 20170830
  Serious: Yes (Disabling)
  Sender: FDA-Public Use
  Company Number: None

PATIENT
  Age: 39 Year
  Sex: Male
  Weight: 87.75 kg

DRUGS (7)
  1. CQQ10 [Concomitant]
  2. HAMMER NUTRITION [Concomitant]
  3. CIPRO [Suspect]
     Active Substance: CIPROFLOXACIN HYDROCHLORIDE
     Indication: DIVERTICULITIS
     Route: 048
     Dates: start: 20170518, end: 20170529
  4. VITAMIN D3 [Concomitant]
     Active Substance: CHOLECALCIFEROL
  5. PPQ [Concomitant]
  6. MG [Concomitant]
     Active Substance: MAGNESIUM
  7. BULLETPROOF SUPPLEMENTS [Concomitant]

REACTIONS (4)
  - Myalgia [None]
  - Arthralgia [None]
  - Vision blurred [None]
  - Fatigue [None]

NARRATIVE: CASE EVENT DATE: 20170529
